FAERS Safety Report 6531027-1 (Version None)
Quarter: 2010Q1

REPORT INFORMATION
  Report Type: 
  Country: None (occurrence: None)
  Receive Date: 20100108
  Receipt Date: 20091118
  Transmission Date: 20100710
  Serious: No
  Sender: FDA-Public Use
  Company Number: A0808855A

PATIENT
  Sex: Female

DRUGS (5)
  1. LOVAZA [Suspect]
     Indication: ANTICOAGULANT THERAPY
     Dosage: 1G TWICE PER DAY
     Route: 048
  2. METOPROLOL TARTRATE [Concomitant]
  3. DIGOXIN [Concomitant]
  4. DILTIAZEM [Concomitant]
  5. VITAMIN D [Concomitant]

REACTIONS (1)
  - HEAT RASH [None]
